FAERS Safety Report 19608385 (Version 1)
Quarter: 2021Q3

REPORT INFORMATION
  Report Type: Spontaneous
  Country: US (occurrence: US)
  Receive Date: 20210723
  Receipt Date: 20210723
  Transmission Date: 20211014
  Serious: Yes (Hospitalization)
  Sender: FDA-Public Use
  Company Number: None

PATIENT
  Age: 46 Year
  Sex: Female
  Weight: 109.35 kg

DRUGS (2)
  1. BAMLANIVIMAB INJECTION [Suspect]
     Active Substance: BAMLANIVIMAB
     Indication: COVID-19
     Dosage: ?          OTHER FREQUENCY:ONCE;?
     Route: 041
     Dates: start: 20210416, end: 20210416
  2. ETESEVIMAB INJECTION [Suspect]
     Active Substance: ETESEVIMAB
     Indication: COVID-19
     Dosage: ?          OTHER FREQUENCY:ONCE;?
     Route: 041
     Dates: start: 20210416, end: 20210416

REACTIONS (4)
  - Cyanosis [None]
  - Oxygen saturation decreased [None]
  - Feeling cold [None]
  - COVID-19 pneumonia [None]

NARRATIVE: CASE EVENT DATE: 20210416
